FAERS Safety Report 24790997 (Version 1)
Quarter: 2024Q4

REPORT INFORMATION
  Report Type: Spontaneous
  Country: BE (occurrence: BE)
  Receive Date: 20241230
  Receipt Date: 20241230
  Transmission Date: 20250114
  Serious: Yes (Other)
  Sender: JOHNSON AND JOHNSON
  Company Number: BE-JNJFOC-20241262708

PATIENT
  Age: 11 Year
  Sex: Female
  Weight: 47 kg

DRUGS (1)
  1. RISPERDAL [Suspect]
     Active Substance: RISPERIDONE
     Indication: Product used for unknown indication
     Dosage: AGENT NAME: RISPERDAL ? MG?AGENT DOSE: 10 PILLS?FREQUENCY: ONCE
     Route: 048

REACTIONS (1)
  - Intentional self-injury [Unknown]
